FAERS Safety Report 9558276 (Version 3)
Quarter: 2013Q4

REPORT INFORMATION
  Report Type: Report from Study
  Country: US (occurrence: US)
  Receive Date: 20130926
  Receipt Date: 20131211
  Transmission Date: 20140711
  Serious: Yes (Hospitalization, Other)
  Sender: FDA-Public Use
  Company Number: US-ABBVIE-13P-163-1055348-00

PATIENT
  Age: 10 Year
  Sex: Male

DRUGS (8)
  1. VALPROIC ACID [Suspect]
     Indication: MYOCLONIC EPILEPSY
     Route: 065
     Dates: start: 201001
  2. VALPROIC ACID [Suspect]
     Indication: ATONIC SEIZURES
  3. AMOXICILLIN [Suspect]
     Indication: PHARYNGITIS STREPTOCOCCAL
     Route: 065
  4. CLOBAZAM [Suspect]
     Indication: ATONIC SEIZURES
     Route: 065
     Dates: start: 201301, end: 20130128
  5. CLOBAZAM [Suspect]
     Indication: MYOCLONIC EPILEPSY
  6. TOPIRAMATE [Suspect]
     Indication: MYOCLONIC EPILEPSY
     Route: 065
     Dates: start: 201207
  7. TOPIRAMATE [Suspect]
     Indication: ATONIC SEIZURES
  8. TRANXENE [Concomitant]
     Indication: PRODUCT USED FOR UNKNOWN INDICATION
     Dates: start: 201012

REACTIONS (5)
  - Feeding disorder [Recovered/Resolved]
  - Stevens-Johnson syndrome [Recovered/Resolved]
  - Lobar pneumonia [Recovered/Resolved]
  - Diarrhoea [Recovered/Resolved]
  - Pharyngitis streptococcal [Recovered/Resolved]
